FAERS Safety Report 8472705-7 (Version None)
Quarter: 2012Q2

REPORT INFORMATION
  Report Type: 
  Country: None (occurrence: None)
  Receive Date: 20120627
  Receipt Date: 20120619
  Transmission Date: 20120825
  Serious: Yes (Other)
  Sender: FDA-Public Use
  Company Number: PHHO2004AU03115

PATIENT
  Sex: Male
  Weight: 71 kg

DRUGS (3)
  1. IMATINIB MESYLATE [Suspect]
     Dosage: 800 MG, QD
     Route: 048
  2. IMATINIB MESYLATE [Suspect]
     Dosage: 600 MG, QD
     Route: 048
  3. IMATINIB MESYLATE [Suspect]
     Indication: HYPEREOSINOPHILIC SYNDROME
     Dosage: 400 MG, QD
     Route: 048
     Dates: start: 20021223

REACTIONS (1)
  - SPERM CONCENTRATION DECREASED [None]
